FAERS Safety Report 16558876 (Version 1)
Quarter: 2019Q3

REPORT INFORMATION
  Report Type: Spontaneous
  Country: US (occurrence: US)
  Receive Date: 20190710
  Receipt Date: 20190710
  Transmission Date: 20191004
  Serious: Yes (Hospitalization)
  Sender: FDA-Public Use
  Company Number: None

PATIENT
  Sex: Female

DRUGS (12)
  1. PROMETHAZINE [Concomitant]
     Active Substance: PROMETHAZINE HYDROCHLORIDE
  2. ZOVIRAX [Concomitant]
     Active Substance: ACYCLOVIR
  3. KLONOPIN [Concomitant]
     Active Substance: CLONAZEPAM
  4. MULTI VITAMIN [Concomitant]
     Active Substance: VITAMINS
  5. VITAMIN D [Concomitant]
     Active Substance: VITAMIN D NOS
  6. MAGNESIUM [Concomitant]
     Active Substance: MAGNESIUM
  7. TACROLIMUS. [Suspect]
     Active Substance: TACROLIMUS
     Indication: TRANSPLANT
     Route: 048
     Dates: start: 20150324
  8. CITRACAL [Concomitant]
     Active Substance: CALCIUM CITRATE
  9. PREDNISONE. [Concomitant]
     Active Substance: PREDNISONE
  10. URSODIOL. [Concomitant]
     Active Substance: URSODIOL
  11. TYLENOL [Concomitant]
     Active Substance: ACETAMINOPHEN
  12. IMODIUM [Concomitant]
     Active Substance: LOPERAMIDE HYDROCHLORIDE

REACTIONS (3)
  - Unevaluable event [None]
  - Dehydration [None]
  - Infection [None]
